FAERS Safety Report 4818629-5 (Version None)
Quarter: 2005Q4

REPORT INFORMATION
  Report Type: 
  Country: None (occurrence: None)
  Receive Date: 20051101
  Receipt Date: 20051024
  Transmission Date: 20060501
  Serious: Yes (Life-Threatening, Hospitalization, Congenital Anomaly, Other)
  Sender: FDA-Public Use
  Company Number: 2005116629

PATIENT
  Sex: Male
  Weight: 4.1277 kg

DRUGS (2)
  1. DEPO-PROVERA [Suspect]
     Indication: CONTRACEPTION
     Dosage: SEE IMAGE
     Route: 030
     Dates: start: 20000630, end: 20000630
  2. DEPO-PROVERA [Suspect]
     Indication: CONTRACEPTION
     Dosage: SEE IMAGE
     Route: 030
     Dates: start: 20011101, end: 20011101

REACTIONS (5)
  - ASTHMA [None]
  - COLLAPSE OF LUNG [None]
  - DRUG EXPOSURE BEFORE PREGNANCY [None]
  - NEONATAL DISORDER [None]
  - VENTRICULAR SEPTAL DEFECT [None]
